FAERS Safety Report 17130701 (Version 1)
Quarter: 2019Q4

REPORT INFORMATION
  Report Type: Report from Study
  Country: IT (occurrence: IT)
  Receive Date: 20191209
  Receipt Date: 20191209
  Transmission Date: 20200122
  Serious: Yes (Other)
  Sender: FDA-Public Use
  Company Number: PHHY2016IT137322

PATIENT
  Age: 30 Year
  Sex: Female

DRUGS (1)
  1. GILENYA [Suspect]
     Active Substance: FINGOLIMOD HYDROCHLORIDE
     Indication: MULTIPLE SCLEROSIS
     Dosage: 0.5 MG, QD
     Route: 048
     Dates: start: 20140219

REACTIONS (4)
  - White blood cell count decreased [Unknown]
  - Lymphocyte count decreased [Not Recovered/Not Resolved]
  - Vitreous detachment [Not Recovered/Not Resolved]
  - Blood bilirubin increased [Unknown]

NARRATIVE: CASE EVENT DATE: 20160314
